FAERS Safety Report 11769354 (Version 10)
Quarter: 2016Q3

REPORT INFORMATION
  Report Type: Spontaneous
  Country: GB (occurrence: GB)
  Receive Date: 20151123
  Receipt Date: 20160913
  Transmission Date: 20161109
  Serious: Yes (Other)
  Sender: FDA-Public Use
  Company Number: PHHY2015GB148078

PATIENT
  Age: 89 Year
  Sex: Female
  Weight: 50.8 kg

DRUGS (6)
  1. BRINZOLAMIDE [Suspect]
     Active Substance: BRINZOLAMIDE
     Indication: GLAUCOMA
     Dosage: 1 DF, Q12H
     Route: 047
     Dates: start: 20150611, end: 20151001
  2. DORZOLAMIDE [Suspect]
     Active Substance: DORZOLAMIDE
     Route: 050
     Dates: start: 20150414, end: 20150611
  3. GANFORT [Concomitant]
     Active Substance: BIMATOPROST\TIMOLOL
     Indication: GLAUCOMA
     Dosage: 1 DF, QD,IN THE MORNNG TO BOTH EYES
     Route: 047
     Dates: start: 20140903
  4. AZOPT [Suspect]
     Active Substance: BRINZOLAMIDE
     Indication: GLAUCOMA
     Dosage: 1 DF, BID (TO BOTH EYES)
     Route: 050
     Dates: start: 20150611, end: 20151001
  5. DORZOLAMIDE [Suspect]
     Active Substance: DORZOLAMIDE
     Indication: GLAUCOMA
     Dosage: 1 DF, Q12H
     Route: 065
     Dates: start: 20150414, end: 20150611
  6. DORZOLAMIDE [Suspect]
     Active Substance: DORZOLAMIDE
     Dosage: TO BOTH EYES.
     Route: 050
     Dates: start: 20150113, end: 20150611

REACTIONS (4)
  - Dyspnoea [Recovered/Resolved]
  - Dizziness [Unknown]
  - Epistaxis [Recovered/Resolved]
  - Malaise [Recovered/Resolved]

NARRATIVE: CASE EVENT DATE: 20150627
